FAERS Safety Report 6543343-8 (Version None)
Quarter: 2010Q1

REPORT INFORMATION
  Report Type: 
  Country: None (occurrence: None)
  Receive Date: 20100120
  Receipt Date: 20100118
  Transmission Date: 20100710
  Serious: Yes (Hospitalization)
  Sender: FDA-Public Use
  Company Number: FR-SANOFI-AVENTIS-2010SA002775

PATIENT
  Age: 86 Year
  Sex: Male

DRUGS (5)
  1. PLAVIX [Suspect]
     Indication: CARDIOMYOPATHY
     Route: 048
  2. KARDEGIC [Suspect]
     Indication: CARDIOMYOPATHY
     Route: 048
  3. ENALAPRIL MALEATE [Concomitant]
     Route: 048
  4. FUROSEMIDE [Concomitant]
     Indication: CARDIOMYOPATHY
     Route: 048
  5. EPOETIN ALFA [Concomitant]

REACTIONS (2)
  - ANURIA [None]
  - HAEMATURIA [None]
